FAERS Safety Report 4682437-9 (Version None)
Quarter: 2005Q2

REPORT INFORMATION
  Report Type: 
  Country: None (occurrence: None)
  Receive Date: 20050606
  Receipt Date: 20050602
  Transmission Date: 20051028
  Serious: Yes (Death, Other)
  Sender: FDA-Public Use
  Company Number: PHBS2005TR07875

PATIENT
  Age: 50 Year
  Sex: Male

DRUGS (3)
  1. CYCLOSPORINE [Suspect]
     Indication: HEART TRANSPLANT
  2. AZATHIOPRINE [Concomitant]
  3. PREDNISONE [Concomitant]

REACTIONS (9)
  - ABDOMINAL PAIN [None]
  - CYTOMEGALOVIRUS INFECTION [None]
  - DIFFUSE LARGE B-CELL LYMPHOMA [None]
  - FATIGUE [None]
  - HEPATIC CONGESTION [None]
  - LIVER FUNCTION TEST ABNORMAL [None]
  - LYMPHOPROLIFERATIVE DISORDER [None]
  - MULTI-ORGAN FAILURE [None]
  - VENTRICULAR HYPOKINESIA [None]
